FAERS Safety Report 23994294 (Version 1)
Quarter: 2024Q2

REPORT INFORMATION
  Report Type: Spontaneous
  Country: CN (occurrence: CN)
  Receive Date: 20240620
  Receipt Date: 20240620
  Transmission Date: 20240716
  Serious: Yes (Hospitalization)
  Sender: FDA-Public Use
  Company Number: CN-BAYER-2024A088463

PATIENT
  Age: 36 Year
  Sex: Female
  Weight: 70 kg

DRUGS (1)
  1. ADEMPAS [Suspect]
     Active Substance: RIOCIGUAT
     Indication: Pulmonary arterial hypertension
     Dosage: 0.5 MG, TID
     Route: 048
     Dates: start: 20240426, end: 20240612

REACTIONS (6)
  - Gastritis [Recovering/Resolving]
  - Gastric mucosa erythema [None]
  - Nausea [Recovering/Resolving]
  - Vomiting [Recovering/Resolving]
  - Product prescribing issue [None]
  - Incorrect drug administration rate [None]

NARRATIVE: CASE EVENT DATE: 20240426
